FAERS Safety Report 13625012 (Version 1)
Quarter: 2017Q2

REPORT INFORMATION
  Report Type: Spontaneous
  Country: CA (occurrence: CA)
  Receive Date: 20170608
  Receipt Date: 20170608
  Transmission Date: 20170830
  Serious: Yes (Death)
  Sender: FDA-Public Use
  Company Number: CA-TEVA-775569ACC

PATIENT
  Age: 17 Year
  Sex: Male
  Weight: 72.64 kg

DRUGS (1)
  1. MINOCYCLINE [Suspect]
     Active Substance: MINOCYCLINE\MINOCYCLINE HYDROCHLORIDE
     Indication: ACNE
     Route: 065

REACTIONS (9)
  - Jaundice [Fatal]
  - Malaise [Fatal]
  - Pancreatic disorder [Fatal]
  - Hepatitis [Fatal]
  - Acute kidney injury [Fatal]
  - Rash generalised [Fatal]
  - Acute hepatic failure [Fatal]
  - Drug reaction with eosinophilia and systemic symptoms [Fatal]
  - Multiple organ dysfunction syndrome [Fatal]
